FAERS Safety Report 5754330-1 (Version None)
Quarter: 2008Q2

REPORT INFORMATION
  Report Type: 
  Country: None (occurrence: None)
  Receive Date: 20080530
  Receipt Date: 20070929
  Transmission Date: 20081010
  Serious: No
  Sender: FDA-Public Use
  Company Number: US-ABBOTT-07P-163-0419405-00

PATIENT
  Sex: Male

DRUGS (1)
  1. GENGRAF [Suspect]
     Indication: RENAL TRANSPLANT
     Dates: start: 20060101

REACTIONS (1)
  - LABORATORY TEST ABNORMAL [None]
